FAERS Safety Report 9697819 (Version 2)
Quarter: 2013Q4

REPORT INFORMATION
  Report Type: Spontaneous
  Country: US (occurrence: US)
  Receive Date: 20131120
  Receipt Date: 20131202
  Transmission Date: 20140711
  Serious: No
  Sender: FDA-Public Use
  Company Number: US-PFIZER INC-2013330791

PATIENT
  Age: 47 Year
  Sex: Female
  Weight: 94.33 kg

DRUGS (3)
  1. LYRICA [Suspect]
     Indication: DIABETIC NEUROPATHY
     Dosage: UNK, 1X/DAY
     Route: 048
     Dates: start: 20130923, end: 2013
  2. MOBIC [Concomitant]
     Dosage: UNK
  3. SYNTHROID [Concomitant]
     Indication: BASEDOW^S DISEASE
     Dosage: UNK

REACTIONS (2)
  - Pain in extremity [Unknown]
  - Pain [Unknown]
